FAERS Safety Report 4754243-8 (Version None)
Quarter: 2005Q3

REPORT INFORMATION
  Report Type: 
  Country: None (occurrence: None)
  Receive Date: 20050825
  Receipt Date: 20050810
  Transmission Date: 20060218
  Serious: Yes (Other)
  Sender: FDA-Public Use
  Company Number: A-US2004-08199

PATIENT
  Age: 68 Year
  Sex: Male
  Weight: 77.1 kg

DRUGS (1)
  1. TRACLEER [Suspect]
     Indication: PULMONARY HYPERTENSION
     Dosage: 62.5 MG, 2 DOSES, ORAL
     Route: 048
     Dates: start: 20040901, end: 20040901

REACTIONS (4)
  - DISORIENTATION [None]
  - FLUSHING [None]
  - LOSS OF CONSCIOUSNESS [None]
  - RASH [None]
